FAERS Safety Report 8885698 (Version 4)
Quarter: 2013Q1

REPORT INFORMATION
  Report Type: Spontaneous
  Country: GB (occurrence: GB)
  Receive Date: 20121105
  Receipt Date: 20130301
  Transmission Date: 20140127
  Serious: Yes (Death, Hospitalization)
  Sender: FDA-Public Use
  Company Number: PHFR2012GB005705

PATIENT
  Age: 37 Year
  Sex: Male

DRUGS (1)
  1. CLOZARIL [Suspect]
     Indication: SCHIZOPHRENIA
     Dosage: UNK UKN, UNK
     Route: 048
     Dates: start: 20090406

REACTIONS (6)
  - Cardiac failure congestive [Fatal]
  - Cardiomyopathy alcoholic [Fatal]
  - Congestive cardiomyopathy [Fatal]
  - Asthma [Unknown]
  - Dyspnoea [Unknown]
  - Gastric dilatation [Unknown]
